FAERS Safety Report 7812590-7 (Version None)
Quarter: 2011Q4

REPORT INFORMATION
  Report Type: 
  Country: None (occurrence: None)
  Receive Date: 20111011
  Receipt Date: 20111004
  Transmission Date: 20120403
  Serious: Yes (Hospitalization, Other)
  Sender: FDA-Public Use
  Company Number: 201110888

PATIENT
  Age: 61 Year
  Sex: Male

DRUGS (2)
  1. LIORESAL [Suspect]
     Indication: MUSCLE SPASTICITY
     Dosage: MCG, DAILY, INTRATHECAL
     Route: 037
  2. MORPHINE [Concomitant]

REACTIONS (7)
  - INFUSION SITE ERYTHEMA [None]
  - COMPLICATION OF DEVICE INSERTION [None]
  - IMPLANT SITE DISCHARGE [None]
  - IMPLANT SITE INFECTION [None]
  - PURULENCE [None]
  - ABDOMINAL WOUND DEHISCENCE [None]
  - REFUSAL OF TREATMENT BY PATIENT [None]
